FAERS Safety Report 9383665 (Version 1)
Quarter: 2013Q3

REPORT INFORMATION
  Report Type: Spontaneous
  Country: US (occurrence: US)
  Receive Date: 20130704
  Receipt Date: 20130704
  Transmission Date: 20140515
  Serious: No
  Sender: FDA-Public Use
  Company Number: US-BAYER-2013-081630

PATIENT
  Sex: Female

DRUGS (4)
  1. ALEVE TABLET [Suspect]
     Dosage: 1 DF, UNK
     Route: 048
     Dates: start: 20130619, end: 20130626
  2. FLEXERIL [Concomitant]
  3. ZOCOR [Concomitant]
  4. SYNTHROID [Concomitant]

REACTIONS (1)
  - Vision blurred [Not Recovered/Not Resolved]
